FAERS Safety Report 9067226 (Version 1)
Quarter: 2013Q1

REPORT INFORMATION
  Report Type: Report from Study
  Country: US (occurrence: US)
  Receive Date: 20130131
  Receipt Date: 20130131
  Transmission Date: 20140127
  Serious: No
  Sender: FDA-Public Use
  Company Number: US-ABBOTT-12P-163-1000297-00

PATIENT
  Age: 36 Year
  Sex: Male

DRUGS (13)
  1. HUMIRA [Suspect]
     Indication: PSORIASIS
     Dates: start: 20120927
  2. HUMIRA [Suspect]
     Dates: start: 20121004
  3. HUMIRA [Suspect]
     Dates: start: 20121018
  4. TOPAMAX [Concomitant]
     Indication: ANGER
  5. FLUVOXAMINE [Concomitant]
     Indication: OBSESSIVE-COMPULSIVE DISORDER
     Dosage: TWO IN THE MORNING AND ONE IN THE EVENING
  6. BENZTROPINE [Concomitant]
     Indication: DROOLING
     Dosage: 0.5 MG DAILY
  7. ZYPREXA [Concomitant]
     Indication: ANXIETY
     Dosage: 5 MG IN THE MIDDLE OF THE DAY AND 2.5 MG AT NIGHTTIME
  8. ABILIFY [Concomitant]
     Indication: PSORIASIS
     Dosage: IN THE EVENING
  9. FISH OIL [Concomitant]
     Indication: PRODUCT USED FOR UNKNOWN INDICATION
  10. ECHINACEA [Concomitant]
     Indication: PRODUCT USED FOR UNKNOWN INDICATION
  11. VITAMIN C [Concomitant]
     Indication: PRODUCT USED FOR UNKNOWN INDICATION
  12. NIACIN [Concomitant]
     Indication: PRODUCT USED FOR UNKNOWN INDICATION
  13. ASTELIN [Concomitant]
     Indication: HYPERSENSITIVITY

REACTIONS (3)
  - Cough [Recovering/Resolving]
  - Oropharyngeal pain [Recovering/Resolving]
  - Upper respiratory tract infection [Recovering/Resolving]
